FAERS Safety Report 7513648-2 (Version None)
Quarter: 2011Q2

REPORT INFORMATION
  Report Type: 
  Country: None (occurrence: None)
  Receive Date: 20110531
  Receipt Date: 20110401
  Transmission Date: 20111010
  Serious: Yes (Other)
  Sender: FDA-Public Use
  Company Number: US-JNJFOC-20110404278

PATIENT
  Age: 63 Year
  Sex: Female
  Weight: 58.97 kg

DRUGS (1)
  1. ULTRA STRENGTH BENGAY PAIN RELIEVING CREAM [Suspect]
     Indication: MUSCULOSKELETAL PAIN
     Dosage: ^MAYBE AN OUNCE, A ROUND CIRCLE^
     Route: 047
     Dates: end: 20110330

REACTIONS (5)
  - VISION BLURRED [None]
  - EYE SWELLING [None]
  - APPLICATION SITE PAIN [None]
  - ACCIDENTAL EXPOSURE [None]
  - EXPIRED DRUG ADMINISTERED [None]
